FAERS Safety Report 11988827 (Version 6)
Quarter: 2016Q3

REPORT INFORMATION
  Report Type: Spontaneous
  Country: US (occurrence: US)
  Receive Date: 20160202
  Receipt Date: 20160913
  Transmission Date: 20161109
  Serious: Yes (Hospitalization, Other)
  Sender: FDA-Public Use
  Company Number: US-PFIZER INC-2016049674

PATIENT
  Age: 89 Year
  Sex: Female
  Weight: 47.36 kg

DRUGS (13)
  1. METOPROLOL. [Concomitant]
     Active Substance: METOPROLOL
     Dosage: 37.5 MG, DAILY
     Route: 065
  2. CELEXA [Concomitant]
     Active Substance: CITALOPRAM HYDROBROMIDE
     Dosage: UNK UNK, DAILY  (10 MG 1/2 TAB DAILY)
  3. VIT. D [Concomitant]
     Dosage: UNK, DAILY (2 DAILY )
  4. LOMOTIL [Concomitant]
     Active Substance: ATROPINE SULFATE\DIPHENOXYLATE HYDROCHLORIDE
     Dosage: 2.5 MG, AS NEEDED
  5. LASIX [Concomitant]
     Active Substance: FUROSEMIDE
     Dosage: 40 MG, AS NEEDED
     Route: 065
  6. CELEXA [Concomitant]
     Active Substance: CITALOPRAM HYDROBROMIDE
     Dosage: 10 MG, DAILY (1)
  7. VITAMIN D3 [Concomitant]
     Active Substance: CHOLECALCIFEROL
     Dosage: 400 MG, UNK
  8. VIT B [Concomitant]
     Active Substance: VITAMIN B
     Dosage: UNK UNK, MONTHLY
     Route: 065
  9. TIKOSYN [Suspect]
     Active Substance: DOFETILIDE
     Indication: ATRIAL FIBRILLATION
     Dosage: 1 DF, 2X/DAY (0.125 MG)
  10. TIKOSYN [Interacting]
     Active Substance: DOFETILIDE
     Indication: CORONARY ARTERY DISEASE
     Dosage: 1 DF, 2X/DAY (0.125 MG)  (MORNING AND NIGHT)
     Dates: start: 20151228
  11. ELIQUIS [Interacting]
     Active Substance: APIXABAN
     Dosage: 2.5 MG, 2X/DAY
     Route: 065
     Dates: start: 20150716
  12. COZAAR [Concomitant]
     Active Substance: LOSARTAN POTASSIUM
     Dosage: 50 MG, DAILY (25 MG 2 DAILY)
     Route: 065
  13. TYLENOL [Concomitant]
     Active Substance: ACETAMINOPHEN
     Dosage: 1 DF, PRN
     Route: 065

REACTIONS (9)
  - Epistaxis [Unknown]
  - Drug interaction [Unknown]
  - Internal haemorrhage [Unknown]
  - Visual impairment [Unknown]
  - Eye haemorrhage [Recovered/Resolved]
  - Eye pruritus [Recovered/Resolved]
  - Fall [Unknown]
  - Ear haemorrhage [Recovered/Resolved]
  - Myocardial infarction [Unknown]

NARRATIVE: CASE EVENT DATE: 201601
